FAERS Safety Report 7562077-4 (Version None)
Quarter: 2011Q2

REPORT INFORMATION
  Report Type: 
  Country: None (occurrence: None)
  Receive Date: 20110622
  Receipt Date: 20090929
  Transmission Date: 20111010
  Serious: Yes (Death, Hospitalization)
  Sender: FDA-Public Use
  Company Number: PHHY2009DE68655

PATIENT
  Sex: Female
  Weight: 73 kg

DRUGS (2)
  1. SANDOSTATIN LAR [Suspect]
     Indication: ACROMEGALY
     Dosage: 10 MG, UNK
     Route: 030
     Dates: start: 20090101
  2. SOMAVERT [Concomitant]
     Dosage: 20 MG, DAILY
     Route: 058

REACTIONS (2)
  - DISORIENTATION [None]
  - CEREBROVASCULAR ACCIDENT [None]
